FAERS Safety Report 10242565 (Version 1)
Quarter: 2014Q2

REPORT INFORMATION
  Report Type: Spontaneous
  Country: DE (occurrence: DE)
  Receive Date: 20140617
  Receipt Date: 20140617
  Transmission Date: 20141212
  Serious: Yes (Disabling)
  Sender: FDA-Public Use
  Company Number: DE-MYLANLABS-2014S1013358

PATIENT
  Age: 83 Year
  Sex: Female

DRUGS (8)
  1. MIRTAZAPIN [Suspect]
     Route: 048
     Dates: start: 20140224, end: 20140306
  2. MIRTAZAPIN [Suspect]
     Route: 048
     Dates: start: 20140307, end: 20140318
  3. MIRTAZAPIN [Suspect]
     Route: 048
     Dates: start: 20140319, end: 20140325
  4. MIRTAZAPIN [Suspect]
     Route: 048
     Dates: start: 20140326
  5. TAVOR [Suspect]
     Route: 048
     Dates: start: 20140310, end: 20140311
  6. TAVOR [Suspect]
     Route: 048
     Dates: start: 20140312
  7. VOCADO [Suspect]
     Route: 048
  8. METFORMIN [Concomitant]
     Route: 048
     Dates: start: 2005

REACTIONS (1)
  - Circulatory collapse [Recovered/Resolved with Sequelae]
